FAERS Safety Report 16365126 (Version 9)
Quarter: 2020Q1

REPORT INFORMATION
  Report Type: Spontaneous
  Country: CA (occurrence: CA)
  Receive Date: 20190529
  Receipt Date: 20200313
  Transmission Date: 20200409
  Serious: Yes (Other)
  Sender: FDA-Public Use
  Company Number: CA-CELLTRION INC.-2019CA021466

PATIENT

DRUGS (10)
  1. INFLECTRA [Suspect]
     Active Substance: INFLIXIMAB-DYYB
     Dosage: 350 MG, (ROUND UP DOSE) ON 0, 2, 6 WEEKS, THEN EVERY 8 WEEKS
     Route: 042
     Dates: start: 20190516
  2. INFLECTRA [Suspect]
     Active Substance: INFLIXIMAB-DYYB
     Dosage: 400 MG EVERY 0, 2, 6 THEN EVERY 6 WEEKS
     Route: 042
     Dates: start: 20190917
  3. INFLECTRA [Suspect]
     Active Substance: INFLIXIMAB-DYYB
     Dosage: 400 MG EVERY 0, 2, 6 THEN EVERY 6 WEEKS
     Route: 042
     Dates: start: 20191017
  4. INFLECTRA [Suspect]
     Active Substance: INFLIXIMAB-DYYB
     Dosage: 400 MG EVERY 0, 2, 6 THEN EVERY 6 WEEKS
     Route: 042
     Dates: start: 20190906
  5. INFLECTRA [Suspect]
     Active Substance: INFLIXIMAB-DYYB
     Dosage: 400 MG EVERY 0, 2, 6 THEN EVERY 6 WEEKS
     Route: 042
     Dates: start: 20200113
  6. PREDNISONE. [Concomitant]
     Active Substance: PREDNISONE
     Dosage: UNK
     Dates: start: 201910, end: 201910
  7. INFLECTRA [Suspect]
     Active Substance: INFLIXIMAB-DYYB
     Dosage: 350 MG, (ROUND UP DOSE) ON 0, 2, 6 WEEKS, THEN EVERY 8 WEEKS
     Route: 042
     Dates: start: 20190321
  8. INFLECTRA [Suspect]
     Active Substance: INFLIXIMAB-DYYB
     Dosage: 400 MG EVERY 0, 2, 6 THEN EVERY 6 WEEKS
     Route: 042
     Dates: start: 20200227
  9. INFLECTRA [Suspect]
     Active Substance: INFLIXIMAB-DYYB
     Indication: CROHN^S DISEASE
     Dosage: 350 MG, (ROUND UP DOSE) ON 0, 2, 6 WEEKS, THEN EVERY 8 WEEKS
     Route: 042
     Dates: start: 20190207
  10. IMURAN [Concomitant]
     Active Substance: AZATHIOPRINE
     Dosage: UNK
     Route: 065

REACTIONS (10)
  - Heart rate decreased [Unknown]
  - Syncope [Recovered/Resolved]
  - Crohn^s disease [Unknown]
  - Hypotension [Unknown]
  - Off label use [Unknown]
  - Weight decreased [Recovering/Resolving]
  - Unresponsive to stimuli [Recovered/Resolved]
  - Feeling abnormal [Unknown]
  - Loss of consciousness [Recovered/Resolved]
  - Infection [Unknown]

NARRATIVE: CASE EVENT DATE: 2019
